FAERS Safety Report 6261784-3 (Version None)
Quarter: 2009Q3

REPORT INFORMATION
  Report Type: 
  Country: None (occurrence: None)
  Receive Date: 20090709
  Receipt Date: 20090629
  Transmission Date: 20100115
  Serious: Yes (Death)
  Sender: FDA-Public Use
  Company Number: US-ELI_LILLY_AND_COMPANY-US200906006941

PATIENT
  Sex: Male

DRUGS (7)
  1. ZYPREXA [Suspect]
     Indication: ANXIETY DISORDER
     Dosage: 5 MG, UNK
     Dates: start: 20040101, end: 20040101
  2. ZYPREXA [Suspect]
     Dosage: 15 MG, UNK
  3. ZYPREXA [Suspect]
     Dosage: 10 MG, DAILY (1/D)
  4. REMERON [Concomitant]
     Dosage: 45 MG, DAILY (1/D)
  5. CLONOPIN [Concomitant]
     Dosage: 1 MG, 4/D
     Dates: start: 20000201
  6. LEXAPRO [Concomitant]
  7. ANTACID TAB [Concomitant]

REACTIONS (19)
  - ABNORMAL BEHAVIOUR [None]
  - ACTIVITIES OF DAILY LIVING IMPAIRED [None]
  - ANHEDONIA [None]
  - CATATONIA [None]
  - COMPLETED SUICIDE [None]
  - DEPRESSION [None]
  - DROOLING [None]
  - DRUG TOLERANCE INCREASED [None]
  - DRUG WITHDRAWAL SYNDROME [None]
  - DYSGRAPHIA [None]
  - HYPERSOMNIA [None]
  - NEGLECT OF PERSONAL APPEARANCE [None]
  - NERVOUSNESS [None]
  - OFF LABEL USE [None]
  - PERSONALITY CHANGE [None]
  - REGRESSIVE BEHAVIOUR [None]
  - THINKING ABNORMAL [None]
  - TOOTH DISORDER [None]
  - WEIGHT DECREASED [None]
